FAERS Safety Report 19711588 (Version 3)
Quarter: 2021Q4

REPORT INFORMATION
  Report Type: Report from Study
  Country: BR (occurrence: BR)
  Receive Date: 20210817
  Receipt Date: 20211005
  Transmission Date: 20220304
  Serious: Yes (Hospitalization, Other)
  Sender: FDA-Public Use
  Company Number: NVSC2021BR184673

PATIENT
  Age: 86 Year
  Sex: Male
  Weight: 55 kg

DRUGS (4)
  1. ENTRESTO [Suspect]
     Active Substance: SACUBITRIL\VALSARTAN
     Indication: Cardiac failure
     Dosage: 1 DF, Q12H
     Route: 048
     Dates: start: 202012
  2. BUDESONIDE\FORMOTEROL FUMARATE [Suspect]
     Active Substance: BUDESONIDE\FORMOTEROL FUMARATE
     Indication: Chronic obstructive pulmonary disease
     Dosage: DOSE, FREQUENCY AND START DATE DID NOT KNOWN HOW TO INFORM
     Route: 055
     Dates: end: 2020
  3. XARELTO [Concomitant]
     Active Substance: RIVAROXABAN
     Indication: Product used for unknown indication
     Dosage: UNK
     Route: 065
  4. PURAN [Concomitant]
     Active Substance: LEVOTHYROXINE SODIUM
     Indication: Product used for unknown indication
     Dosage: 1 DF, QD (STARTED MANY YEARS AGO)
     Route: 048

REACTIONS (10)
  - Dyspnoea [Not Recovered/Not Resolved]
  - Malaise [Recovered/Resolved]
  - Embolism [Recovering/Resolving]
  - Urinary tract infection bacterial [Unknown]
  - Drug dependence [Unknown]
  - Deafness [Not Recovered/Not Resolved]
  - Pulmonary embolism [Recovering/Resolving]
  - Lung disorder [Recovering/Resolving]
  - Urinary tract infection [Recovered/Resolved]
  - Cardiac failure [Not Recovered/Not Resolved]

NARRATIVE: CASE EVENT DATE: 20210901
